FAERS Safety Report 23029270 (Version 2)
Quarter: 2023Q4

REPORT INFORMATION
  Report Type: Spontaneous
  Country: HR (occurrence: HR)
  Receive Date: 20231004
  Receipt Date: 20231018
  Transmission Date: 20240109
  Serious: Yes (Other)
  Sender: FDA-Public Use
  Company Number: HR-BAYER-2023A136903

PATIENT
  Age: 75 Year
  Sex: Male

DRUGS (1)
  1. NUBEQA [Suspect]
     Active Substance: DAROLUTAMIDE
     Indication: Hormone-refractory prostate cancer
     Dosage: UNK
     Dates: start: 202205

REACTIONS (2)
  - Myocardial infarction [Recovered/Resolved]
  - Cerebrovascular accident [Recovered/Resolved]

NARRATIVE: CASE EVENT DATE: 20230301
